FAERS Safety Report 5135698-6 (Version None)
Quarter: 2006Q4

REPORT INFORMATION
  Report Type: 
  Country: None (occurrence: None)
  Receive Date: 20061026
  Receipt Date: 20061018
  Transmission Date: 20070319
  Serious: Yes (Other)
  Sender: FDA-Public Use
  Company Number: IT-BRISTOL-MYERS SQUIBB COMPANY-13545603

PATIENT
  Age: 58 Year
  Sex: Male

DRUGS (3)
  1. STAVUDINE [Suspect]
     Indication: HIV INFECTION
     Dates: start: 19980101
  2. LAMIVUDINE [Suspect]
     Indication: HIV INFECTION
     Dates: start: 19980101
  3. SAQUINAVIR [Suspect]
     Indication: HIV INFECTION
     Dates: start: 19980101

REACTIONS (1)
  - BLADDER CANCER [None]
